FAERS Safety Report 13178198 (Version 1)
Quarter: 2017Q1

REPORT INFORMATION
  Report Type: Report from Study
  Country: US (occurrence: None)
  Receive Date: 20170201
  Receipt Date: 20170201
  Transmission Date: 20170428
  Serious: Yes (Life-Threatening, Hospitalization)
  Sender: FDA-Public Use
  Company Number: 2014UCU075000327

PATIENT
  Age: 32 Year
  Sex: Female
  Weight: 65.77 kg

DRUGS (14)
  1. METRONIDAZOLE. [Concomitant]
     Active Substance: METRONIDAZOLE
  2. ADALIMUMAB [Concomitant]
     Active Substance: ADALIMUMAB
  3. CIMZIA [Suspect]
     Active Substance: CERTOLIZUMAB PEGOL
     Indication: CROHN^S DISEASE
     Dates: start: 20110716, end: 20140417
  4. MESALAMINE. [Concomitant]
     Active Substance: MESALAMINE
  5. PREDNISONE. [Concomitant]
     Active Substance: PREDNISONE
  6. REMICADE [Suspect]
     Active Substance: INFLIXIMAB
     Route: 042
     Dates: start: 201404
  7. CIPROFLOXACIN. [Concomitant]
     Active Substance: CIPROFLOXACIN
  8. MULTIVITAMIN [Concomitant]
     Active Substance: VITAMINS
  9. CALCIUM [Concomitant]
     Active Substance: CALCIUM
  10. METHOTREXATE. [Suspect]
     Active Substance: METHOTREXATE
     Route: 048
     Dates: start: 201112
  11. INFLIXIMAB [Concomitant]
     Active Substance: INFLIXIMAB
  12. CLINDAMYCIN. [Concomitant]
     Active Substance: CLINDAMYCIN
  13. SYNTHROID [Concomitant]
     Active Substance: LEVOTHYROXINE SODIUM
  14. 6-MP [Concomitant]
     Active Substance: MERCAPTOPURINE

REACTIONS (1)
  - Urosepsis [None]

NARRATIVE: CASE EVENT DATE: 20140709
